FAERS Safety Report 6292113-7 (Version None)
Quarter: 2009Q3

REPORT INFORMATION
  Report Type: 
  Country: None (occurrence: None)
  Receive Date: 20090731
  Receipt Date: 20090723
  Transmission Date: 20100115
  Serious: Yes (Life-Threatening, Hospitalization)
  Sender: FDA-Public Use
  Company Number: AU-WYE-H10328609

PATIENT
  Sex: Male

DRUGS (10)
  1. SOMAC [Suspect]
     Dosage: UNSPECIFIED
     Route: 065
  2. CEFTRIAXONE [Suspect]
     Dosage: UNSPECIFIED
     Route: 065
  3. DILATREND [Suspect]
     Dosage: UNSPECIFIED
     Route: 065
  4. RESONIUM A [Concomitant]
     Dosage: UNSPECIFIED
     Route: 065
  5. TAMIFLU [Suspect]
     Dosage: 75 MG, FREQUENCY UNSPECIFIED
     Route: 048
     Dates: start: 20090604, end: 20090607
  6. TRITACE [Suspect]
     Dosage: UNSPECIFIED
     Route: 065
  7. AZITHROMYCIN [Concomitant]
     Dosage: UNSPECIFIED
     Route: 065
  8. LASIX [Concomitant]
     Dosage: UNSPECIFIED
     Route: 065
  9. CECLOR CD [Suspect]
     Dosage: UNSPECIFIED
     Route: 065
  10. DOXYLIN ^ALPHAPHARM^ [Suspect]
     Dosage: UNSPECIFIED
     Route: 065

REACTIONS (11)
  - ABDOMINAL PAIN [None]
  - ABNORMAL BEHAVIOUR [None]
  - DELIRIUM [None]
  - DIARRHOEA [None]
  - HALLUCINATION [None]
  - HEPATOCELLULAR INJURY [None]
  - NAUSEA [None]
  - NEUTROPHILIA [None]
  - RENAL INJURY [None]
  - VOMITING [None]
  - WHITE BLOOD CELL COUNT INCREASED [None]
